FAERS Safety Report 25719549 (Version 1)
Quarter: 2025Q3

REPORT INFORMATION
  Report Type: Report from Study
  Country: CA (occurrence: CA)
  Receive Date: 20250825
  Receipt Date: 20250825
  Transmission Date: 20251021
  Serious: Yes (Other)
  Sender: TEVA
  Company Number: CA-TEVA-VS-3365856

PATIENT
  Sex: Female

DRUGS (1)
  1. ZOLEDRONIC ACID [Suspect]
     Active Substance: ZOLEDRONIC ACID
     Indication: Osteoporosis
     Dosage: INJECTION,DOSE FORM:SOLUTION INTRAVENOUS
     Route: 065

REACTIONS (2)
  - Tumour flare [Recovered/Resolved]
  - Papillary cystadenoma lymphomatosum [Recovered/Resolved]
